FAERS Safety Report 10055293 (Version 1)
Quarter: 2014Q2

REPORT INFORMATION
  Report Type: Spontaneous
  Country: IN (occurrence: IN)
  Receive Date: 20140403
  Receipt Date: 20140403
  Transmission Date: 20141212
  Serious: Yes (Other)
  Sender: FDA-Public Use
  Company Number: IN-ROCHE-1374254

PATIENT
  Age: 74 Year
  Sex: Female

DRUGS (2)
  1. AVASTIN [Suspect]
     Indication: RETINAL TELANGIECTASIA
     Dosage: 100 MG/4 ML
     Route: 031
  2. AVASTIN [Suspect]
     Indication: CHOROIDAL NEOVASCULARISATION

REACTIONS (3)
  - Endophthalmitis [Recovered/Resolved]
  - Suspected transmission of an infectious agent via product [Unknown]
  - Product quality issue [Unknown]
